FAERS Safety Report 4402638-4 (Version None)
Quarter: 2004Q3

REPORT INFORMATION
  Report Type: 
  Country: None (occurrence: None)
  Receive Date: 20040721
  Receipt Date: 20040311
  Transmission Date: 20050211
  Serious: Yes (Other)
  Sender: FDA-Public Use
  Company Number: PHBS2004BR03443

PATIENT
  Age: 20 Year
  Sex: Female
  Weight: 45 kg

DRUGS (2)
  1. VOLTAREN-XR [Suspect]
     Indication: PAIN IN EXTREMITY
     Dosage: 1 DF, Q8H
     Route: 048
     Dates: start: 20040310
  2. PRAZOSIN HYDROCHLORIDE [Concomitant]
     Indication: CONTRACEPTION
     Dosage: 1 DF/DAY
     Route: 048

REACTIONS (3)
  - DYSGEUSIA [None]
  - MALAISE [None]
  - PHARYNGEAL HAEMORRHAGE [None]
